FAERS Safety Report 5040919-4 (Version None)
Quarter: 2006Q2

REPORT INFORMATION
  Report Type: 
  Country: None (occurrence: None)
  Receive Date: 20060629
  Receipt Date: 20060629
  Transmission Date: 20061013
  Serious: No
  Sender: FDA-Public Use
  Company Number: None

PATIENT

DRUGS (4)
  1. LIDOCAINE 2% [Suspect]
     Indication: CATARACT OPERATION
     Dosage: VARIOUS ONCE INTRAOCULAR
     Route: 031
     Dates: start: 20060524, end: 20060524
  2. LIDOCAINE 2% [Suspect]
     Indication: LOCAL ANAESTHESIA
     Dosage: VARIOUS ONCE INTRAOCULAR
     Route: 031
     Dates: start: 20060524, end: 20060524
  3. SENSORCAINE [Suspect]
     Indication: CATARACT OPERATION
     Dosage: VARIOUS ONCE INTRAOCULA
     Route: 031
     Dates: start: 20060524, end: 20060524
  4. SENSORCAINE [Suspect]
     Indication: LOCAL ANAESTHESIA
     Dosage: VARIOUS ONCE INTRAOCULA
     Route: 031
     Dates: start: 20060524, end: 20060524

REACTIONS (3)
  - ANAESTHETIC COMPLICATION [None]
  - DRUG INEFFECTIVE [None]
  - PHARMACEUTICAL PRODUCT COMPLAINT [None]
